FAERS Safety Report 16949639 (Version 1)
Quarter: 2019Q4

REPORT INFORMATION
  Report Type: Spontaneous
  Country: US (occurrence: US)
  Receive Date: 20190830
  Receipt Date: 20190830
  Transmission Date: 20200122
  Serious: Yes (Hospitalization)
  Sender: FDA-Public Use
  Company Number: None

PATIENT
  Age: 68 Year
  Sex: Male
  Weight: 89.8 kg

DRUGS (3)
  1. LEUPROLIDE ACETATE. [Suspect]
     Active Substance: LEUPROLIDE ACETATE
     Dates: end: 20190408
  2. TAXOTERE [Suspect]
     Active Substance: DOCETAXEL
     Dates: end: 20190722
  3. CASODEX [Suspect]
     Active Substance: BICALUTAMIDE
     Dates: end: 20190616

REACTIONS (7)
  - Odynophagia [None]
  - Productive cough [None]
  - Cough [None]
  - Neutropenia [None]
  - Pyrexia [None]
  - Upper respiratory tract infection [None]
  - Therapy cessation [None]

NARRATIVE: CASE EVENT DATE: 20190802
